FAERS Safety Report 9313071 (Version 1)
Quarter: 2013Q2

REPORT INFORMATION
  Report Type: Spontaneous
  Country: US (occurrence: US)
  Receive Date: 20130528
  Receipt Date: 20130528
  Transmission Date: 20140414
  Serious: No
  Sender: FDA-Public Use
  Company Number: US-ABBOTT-13P-163-1079058-00

PATIENT
  Sex: Male
  Weight: 117.13 kg

DRUGS (3)
  1. ANDROGEL [Suspect]
     Indication: BLOOD TESTOSTERONE DECREASED
     Route: 061
  2. UNKNOWN MEDICATION [Concomitant]
     Indication: BLOOD GLUCOSE ABNORMAL
  3. UNKNOWN MEDICATION [Concomitant]
     Indication: THYROID DISORDER

REACTIONS (1)
  - Drug administered at inappropriate site [Not Recovered/Not Resolved]
